FAERS Safety Report 9391529 (Version 2)
Quarter: 2013Q3

REPORT INFORMATION
  Report Type: Spontaneous
  Country: CH (occurrence: CH)
  Receive Date: 20130709
  Receipt Date: 20130722
  Transmission Date: 20140515
  Serious: Yes (Disabling)
  Sender: FDA-Public Use
  Company Number: CH-JNJFOC-20130617460

PATIENT
  Age: 66 Year
  Sex: Female
  Weight: 58 kg

DRUGS (6)
  1. SPORANOX [Suspect]
     Indication: NASAL POLYPS
     Route: 014
     Dates: start: 2009, end: 20130411
  2. ALVESCO [Suspect]
     Indication: ASTHMA
     Route: 065
  3. KENACORT [Suspect]
     Indication: LIGAMENT SPRAIN
     Route: 040
     Dates: start: 201302
  4. KENACORT [Suspect]
     Indication: LIGAMENT SPRAIN
     Route: 040
     Dates: start: 20130320
  5. KENACORT [Suspect]
     Indication: STATUS ASTHMATICUS
     Route: 040
     Dates: start: 20130320
  6. KENACORT [Suspect]
     Indication: STATUS ASTHMATICUS
     Route: 040
     Dates: start: 201302

REACTIONS (6)
  - Cushing^s syndrome [Recovering/Resolving]
  - Ligament sprain [Unknown]
  - Cushingoid [Unknown]
  - Muscular weakness [Unknown]
  - Asthma [Unknown]
  - Incorrect route of drug administration [Unknown]
